FAERS Safety Report 25090555 (Version 1)
Quarter: 2025Q1

REPORT INFORMATION
  Report Type: Spontaneous
  Country: US (occurrence: None)
  Receive Date: 20250318
  Receipt Date: 20250318
  Transmission Date: 20250409
  Serious: Yes (Hospitalization)
  Sender: FDA-CTU
  Company Number: None

PATIENT
  Sex: Female

DRUGS (10)
  1. AMBRISENTAN [Suspect]
     Active Substance: AMBRISENTAN
     Indication: Pulmonary arterial hypertension
     Dosage: FREQUENCY : DAILY;?
     Route: 048
  2. METFORMIN HYDROCHLORIDE [Concomitant]
     Active Substance: METFORMIN HYDROCHLORIDE
  3. FUROSEMIDE [Concomitant]
     Active Substance: FUROSEMIDE
  4. BUMETANIDE [Concomitant]
     Active Substance: BUMETANIDE
  5. GLIPIZIDE [Concomitant]
     Active Substance: GLIPIZIDE
  6. MIRTAZAPINE [Concomitant]
     Active Substance: MIRTAZAPINE
  7. BUDESONIDE [Concomitant]
     Active Substance: BUDESONIDE
  8. POTASSIUM CHLORIDE [Concomitant]
     Active Substance: POTASSIUM CHLORIDE
  9. BUMEX [Concomitant]
     Active Substance: BUMETANIDE
  10. TADALAFIL [Concomitant]
     Active Substance: TADALAFIL

REACTIONS (1)
  - Hospitalisation [None]
